FAERS Safety Report 10060077 (Version 5)
Quarter: 2014Q3

REPORT INFORMATION
  Report Type: Report from Study
  Country: US (occurrence: US)
  Receive Date: 20140404
  Receipt Date: 20140702
  Transmission Date: 20150326
  Serious: Yes (Death, Hospitalization)
  Sender: FDA-Public Use
  Company Number: US-ACTELION-A-NJ2014-97020

PATIENT
  Age: 48 Year
  Sex: Male

DRUGS (13)
  1. ATORVASTATIN [Concomitant]
     Active Substance: ATORVASTATIN
  2. VENTAVIS [Suspect]
     Active Substance: ILOPROST
     Indication: PULMONARY ARTERIAL HYPERTENSION
     Dosage: 5 MCG, 6-9X/DAY
     Route: 055
     Dates: start: 20140210, end: 20140604
  3. TORSEMIDE. [Concomitant]
     Active Substance: TORSEMIDE
  4. METOPROLOL [Concomitant]
     Active Substance: METOPROLOL
  5. LISINOPRIL. [Concomitant]
     Active Substance: LISINOPRIL
  6. EPLERENONE. [Concomitant]
     Active Substance: EPLERENONE
  7. DOFETILIDE [Concomitant]
     Active Substance: DOFETILIDE
  8. VENTAVIS [Suspect]
     Active Substance: ILOPROST
     Dosage: 2.5 MCG, 6-9X/DAY
     Route: 055
     Dates: start: 20140203
  9. WARFARIN [Concomitant]
     Active Substance: WARFARIN
  10. FUROSEMIDE. [Concomitant]
     Active Substance: FUROSEMIDE
  11. REVATIO [Concomitant]
     Active Substance: SILDENAFIL CITRATE
  12. POTASSIUM [Concomitant]
     Active Substance: POTASSIUM
  13. FE [Concomitant]
     Active Substance: IRON

REACTIONS (8)
  - Syncope [Unknown]
  - Pulmonary arterial hypertension [Fatal]
  - Ventricular fibrillation [Unknown]
  - Fluid retention [Unknown]
  - Atrial fibrillation [Recovered/Resolved]
  - Cardiac disorder [Unknown]
  - Oedema [Unknown]
  - Cardiac arrest [Unknown]

NARRATIVE: CASE EVENT DATE: 20140317
